FAERS Safety Report 4909405-3 (Version None)
Quarter: 2006Q1

REPORT INFORMATION
  Report Type: 
  Country: None (occurrence: None)
  Receive Date: 20060210
  Receipt Date: 20060210
  Transmission Date: 20060701
  Serious: Yes (Hospitalization)
  Sender: FDA-Public Use
  Company Number: None

PATIENT
  Age: 31 Year
  Sex: Male
  Weight: 107.9561 kg

DRUGS (2)
  1. KEPPRA [Suspect]
     Indication: AGGRESSION
     Dosage: 250MG OR PLACEBO  BID  PO  (ONLY 1 DOSE)
     Route: 048
     Dates: start: 20060201
  2. ADVIL [Concomitant]

REACTIONS (2)
  - DEPRESSION [None]
  - SUICIDAL IDEATION [None]
